FAERS Safety Report 20072852 (Version 8)
Quarter: 2023Q1

REPORT INFORMATION
  Report Type: Report from Study
  Country: KR (occurrence: None)
  Receive Date: 20211116
  Receipt Date: 20230127
  Transmission Date: 20230418
  Serious: Yes (Hospitalization)
  Sender: FDA-Public Use
  Company Number: KR-ROCHE-2951981

PATIENT
  Age: 60 Year
  Sex: Male
  Weight: 73.3 kg

DRUGS (27)
  1. TIRAGOLUMAB [Suspect]
     Active Substance: TIRAGOLUMAB
     Indication: Metastatic neoplasm
     Dosage: DOSE LAST STUDY DRUG ADMIN PRIOR AE IS 600 MG?START DATE OF MOST RECENT DOSE OF STUDY DRUG PRIOR TO
     Route: 042
     Dates: start: 20210128
  2. ATEZOLIZUMAB [Suspect]
     Active Substance: ATEZOLIZUMAB
     Indication: Metastatic neoplasm
     Dosage: DOSE LAST STUDY DRUG ADMIN PRIOR AE IS 1200 MG?START DATE OF MOST RECENT DOSE OF STUDY DRUG PRIOR TO
     Route: 042
     Dates: start: 20210128
  3. CARBOPLATIN [Suspect]
     Active Substance: CARBOPLATIN
     Indication: Metastatic neoplasm
     Dosage: DOSE LAST STUDY DRUG ADMIN PRIOR AE IS 699.2 MG?START DATE OF MOST RECENT DOSE OF STUDY DRUG PRIOR T
     Route: 042
     Dates: start: 20210128
  4. PEMETREXED [Suspect]
     Active Substance: PEMETREXED
     Indication: Metastatic neoplasm
     Dosage: DOSE LAST STUDY DRUG ADMIN PRIOR AE IS 865 MG?START DATE OF MOST RECENT DOSE OF STUDY DRUG PRIOR TO
     Route: 042
     Dates: start: 20210128
  5. AMBROXOL ACEFYLLINATE [Concomitant]
     Active Substance: AMBROXOL ACEFYLLINATE
     Route: 048
     Dates: start: 20210107
  6. FOLIC ACID [Concomitant]
     Active Substance: FOLIC ACID
     Indication: Premedication
     Route: 048
     Dates: start: 20210127, end: 20211125
  7. METOCLOPRAMIDE [Concomitant]
     Active Substance: METOCLOPRAMIDE
     Route: 048
     Dates: start: 20210128
  8. METHYLPREDNISOLONE [Concomitant]
     Active Substance: METHYLPREDNISOLONE
     Indication: Rash
     Route: 061
     Dates: start: 20210219
  9. METHYLPREDNISOLONE [Concomitant]
     Active Substance: METHYLPREDNISOLONE
     Dosage: 8 TABLET
     Route: 048
     Dates: start: 20211110, end: 20211118
  10. METHYLPREDNISOLONE [Concomitant]
     Active Substance: METHYLPREDNISOLONE
     Route: 048
     Dates: start: 20211119, end: 20211125
  11. SOD BICARBONATE [Concomitant]
     Indication: Acidosis
     Route: 042
     Dates: start: 20211102, end: 20211109
  12. ALBUMIN HUMAN [Concomitant]
     Active Substance: ALBUMIN HUMAN
     Route: 042
     Dates: start: 20211104, end: 20211104
  13. AZITHROMYCIN [Concomitant]
     Active Substance: AZITHROMYCIN
     Route: 042
     Dates: start: 20211102, end: 20211109
  14. COBAMAMIDE [Concomitant]
     Active Substance: COBAMAMIDE
     Route: 030
     Dates: start: 20211027, end: 20211027
  15. CEFTRIAXONE [Concomitant]
     Active Substance: CEFTRIAXONE
     Route: 042
     Dates: start: 20211102, end: 20211108
  16. FUROSEMIDE [Concomitant]
     Active Substance: FUROSEMIDE
     Indication: Oedema peripheral
     Route: 042
     Dates: start: 20211104, end: 20211106
  17. FUROSEMIDE [Concomitant]
     Active Substance: FUROSEMIDE
     Route: 048
     Dates: start: 20211027, end: 20211029
  18. FUROSEMIDE [Concomitant]
     Active Substance: FUROSEMIDE
     Route: 048
     Dates: start: 20211102, end: 20211109
  19. DEXAMETHASONE [Concomitant]
     Active Substance: DEXAMETHASONE
     Route: 048
     Dates: start: 20211004, end: 20211006
  20. DEXAMETHASONE [Concomitant]
     Active Substance: DEXAMETHASONE
     Route: 048
     Dates: start: 20211026, end: 20211028
  21. ESOMEPRAZOLE [Concomitant]
     Active Substance: ESOMEPRAZOLE
     Route: 048
     Dates: start: 20211105, end: 20211125
  22. FAMOTIDINE [Concomitant]
     Active Substance: FAMOTIDINE
     Route: 048
     Dates: start: 20211126
  23. KCL [Concomitant]
     Active Substance: POTASSIUM CHLORIDE
     Indication: Acidosis
     Route: 048
     Dates: start: 20211103, end: 20211109
  24. MEGESTROL [Concomitant]
     Active Substance: MEGESTROL
     Indication: Oral dysaesthesia
     Route: 048
     Dates: start: 20211005, end: 20211025
  25. SPIRONOLACTONE [Concomitant]
     Active Substance: SPIRONOLACTONE
     Indication: Oedema peripheral
     Route: 048
     Dates: start: 20211106, end: 20211109
  26. FEXOFENADINE [Concomitant]
     Active Substance: FEXOFENADINE HYDROCHLORIDE
     Indication: Pruritus
     Route: 048
     Dates: start: 20210914, end: 20211004
  27. AFATINIB [Concomitant]
     Active Substance: AFATINIB
     Indication: Neoplasm malignant
     Dates: start: 20220614, end: 20220808

REACTIONS (2)
  - Drug-induced liver injury [Not Recovered/Not Resolved]
  - Rhabdomyolysis [Not Recovered/Not Resolved]

NARRATIVE: CASE EVENT DATE: 20211027
